FAERS Safety Report 14281218 (Version 7)
Quarter: 2019Q3

REPORT INFORMATION
  Report Type: Spontaneous
  Country: HU (occurrence: HU)
  Receive Date: 20171213
  Receipt Date: 20190711
  Transmission Date: 20191004
  Serious: Yes (Other)
  Sender: FDA-Public Use
  Company Number: HU-MYLANLABS-2017M1076891

PATIENT
  Age: 87 Year
  Sex: Male

DRUGS (7)
  1. AMLODIPINE [Suspect]
     Active Substance: AMLODIPINE BESYLATE
     Indication: HYPERTONIA
     Dosage: 5 MILLIGRAM
     Route: 048
  2. RAMIPRIL + HIDROCLOROTIAZIDA [Suspect]
     Active Substance: HYDROCHLOROTHIAZIDE\RAMIPRIL
     Indication: HYPERTENSION
     Dosage: UNK
     Route: 065
  3. DOXAZOSIN [Suspect]
     Active Substance: DOXAZOSIN MESYLATE
     Dosage: 4 MILLIGRAM
     Route: 065
  4. DOXAZOSIN [Suspect]
     Active Substance: DOXAZOSIN MESYLATE
     Indication: HYPERTENSION
     Dosage: 2 MILLIGRAM
     Route: 048
     Dates: start: 20150101
  5. ATORVASTATIN [Suspect]
     Active Substance: ATORVASTATIN
     Indication: LIPIDS ABNORMAL
     Dosage: 20 MILLIGRAM
     Route: 048
  6. FINASTERIDE. [Suspect]
     Active Substance: FINASTERIDE
     Indication: BENIGN PROSTATIC HYPERPLASIA
     Dosage: UNK
     Route: 048
  7. RAMIPRIL. [Suspect]
     Active Substance: RAMIPRIL
     Indication: HYPERTENSION
     Dosage: 10 MILLIGRAM
     Route: 048

REACTIONS (8)
  - Feeling abnormal [Unknown]
  - Stenosis [Unknown]
  - Renal impairment [Recovered/Resolved]
  - Arteriosclerosis [Unknown]
  - Treatment noncompliance [Unknown]
  - Dizziness [Recovered/Resolved]
  - Orthostatic hypotension [Recovered/Resolved]
  - Fatigue [Unknown]

NARRATIVE: CASE EVENT DATE: 2015
